FAERS Safety Report 13196107 (Version 2)
Quarter: 2017Q2

REPORT INFORMATION
  Report Type: Spontaneous
  Country: GB (occurrence: GB)
  Receive Date: 20170208
  Receipt Date: 20170520
  Transmission Date: 20170830
  Serious: Yes (Other)
  Sender: FDA-Public Use
  Company Number: GB-AUROBINDO-AUR-APL-2017-29273

PATIENT
  Age: 19 Year
  Sex: Male

DRUGS (1)
  1. SUMATRIPTAN 50MG [Suspect]
     Active Substance: SUMATRIPTAN
     Indication: MIGRAINE WITH AURA
     Dosage: 50 MG, SINGLE DOSE
     Route: 048

REACTIONS (1)
  - IIIrd nerve paresis [Recovered/Resolved]
